FAERS Safety Report 16342735 (Version 1)
Quarter: 2019Q2

REPORT INFORMATION
  Report Type: Spontaneous
  Country: US (occurrence: US)
  Receive Date: 20190522
  Receipt Date: 20190522
  Transmission Date: 20190711
  Serious: No
  Sender: FDA-Public Use
  Company Number: US-AMAG PHARMACEUTICALS, INC.-AMAG201901093

PATIENT
  Age: 61 Year
  Sex: Female
  Weight: 54.88 kg

DRUGS (2)
  1. INTRAROSA [Suspect]
     Active Substance: PRASTERONE
     Indication: DYSPAREUNIA
     Dosage: 6.5 MG, QHS
     Route: 067
     Dates: start: 20181201
  2. INTRAROSA [Suspect]
     Active Substance: PRASTERONE
     Indication: MENOPAUSAL SYMPTOMS

REACTIONS (4)
  - Vulvovaginal pain [Not Recovered/Not Resolved]
  - Vulvovaginal burning sensation [Not Recovered/Not Resolved]
  - Off label use [Unknown]
  - Vulvovaginal pruritus [Not Recovered/Not Resolved]

NARRATIVE: CASE EVENT DATE: 2019
